FAERS Safety Report 7494887-6 (Version None)
Quarter: 2011Q2

REPORT INFORMATION
  Report Type: 
  Country: None (occurrence: None)
  Receive Date: 20110520
  Receipt Date: 20110504
  Transmission Date: 20111010
  Serious: No
  Sender: FDA-Public Use
  Company Number: US-B.I. PHARMACEUTICALS,INC./RIDGEFIELD-2011-BP-09207BP

PATIENT
  Sex: Female

DRUGS (7)
  1. PRADAXA [Suspect]
     Indication: ATRIAL FIBRILLATION
     Dosage: 300 MG
     Route: 048
     Dates: start: 20110310
  2. COREG [Concomitant]
     Indication: HYPERTENSION
  3. PREVACID [Concomitant]
     Indication: GASTROOESOPHAGEAL REFLUX DISEASE
  4. A STATIN [Concomitant]
     Indication: BLOOD CHOLESTEROL INCREASED
  5. WELCHOL [Concomitant]
     Indication: GASTROOESOPHAGEAL REFLUX DISEASE
  6. AMLODIPINE [Concomitant]
     Indication: HYPERTENSION
  7. AMBIEN CR [Concomitant]
     Indication: INSOMNIA

REACTIONS (2)
  - VISION BLURRED [None]
  - EYE HAEMORRHAGE [None]
